FAERS Safety Report 8134458-1 (Version None)
Quarter: 2012Q1

REPORT INFORMATION
  Report Type: 
  Country: None (occurrence: None)
  Receive Date: 20120214
  Receipt Date: 20120214
  Transmission Date: 20120608
  Serious: No
  Sender: FDA-Public Use
  Company Number: None

PATIENT
  Age: 24 Year
  Sex: Male
  Weight: 85 kg

DRUGS (1)
  1. FINASTERIDE [Suspect]

REACTIONS (8)
  - LOSS OF LIBIDO [None]
  - DYSPEPSIA [None]
  - ANXIETY [None]
  - RASH ERYTHEMATOUS [None]
  - ACNE CYSTIC [None]
  - SENSITIVITY OF TEETH [None]
  - DEPRESSION [None]
  - FAT TISSUE INCREASED [None]
